FAERS Safety Report 9242196 (Version 5)
Quarter: 2013Q4

REPORT INFORMATION
  Report Type: Report from Study
  Country: CA (occurrence: CA)
  Receive Date: 20130419
  Receipt Date: 20131002
  Transmission Date: 20140711
  Serious: Yes (Death)
  Sender: FDA-Public Use
  Company Number: CA-PFIZER INC-2013122305

PATIENT
  Sex: 0

DRUGS (6)
  1. METRONIDAZOLE [Suspect]
     Indication: NEOPLASM
     Dosage: 750 MG/M2 DAILY
     Route: 048
  2. METRONIDAZOLE [Suspect]
     Indication: NEOPLASM
     Dosage: 250 MG/M2, 1X/DAY
     Route: 054
  3. ETOPOSIDE [Suspect]
     Indication: NEOPLASM
     Dosage: 75 MG/M2, DAILY
     Route: 042
  4. TAMOXIFEN CITRATE [Suspect]
     Indication: NEOPLASM
     Dosage: 100 MG /M2 EACH MORNING
     Route: 048
  5. DIPYRIDAMOLE [Suspect]
     Indication: NEOPLASM
     Dosage: 100 MG/KG, 4X/DAY (EVERY 6 HOURS)
     Route: 048
  6. KETOCONAZOLE [Suspect]
     Indication: NEOPLASM
     Dosage: 350 MG/M2, DAILY (EACH MORNING)
     Route: 048

REACTIONS (1)
  - Neutropenic sepsis [Fatal]
